FAERS Safety Report 19783636 (Version 1)
Quarter: 2021Q3

REPORT INFORMATION
  Report Type: Spontaneous
  Country: US (occurrence: US)
  Receive Date: 20210902
  Receipt Date: 20210902
  Transmission Date: 20211014
  Serious: No
  Sender: FDA-Public Use
  Company Number: None

PATIENT
  Age: 23 Year
  Sex: Female
  Weight: 111.15 kg

DRUGS (6)
  1. LAMOTRIGINE. [Suspect]
     Active Substance: LAMOTRIGINE
     Indication: BIPOLAR DISORDER
     Dosage: ?          QUANTITY:3 TABLET(S);?
     Route: 048
     Dates: start: 20210131
  2. NICOTINE. [Concomitant]
     Active Substance: NICOTINE
  3. ALCOHOL. [Concomitant]
     Active Substance: ALCOHOL
  4. NAPROXEN. [Concomitant]
     Active Substance: NAPROXEN
  5. ALBUTEROL. [Concomitant]
     Active Substance: ALBUTEROL
  6. MARIJUANA [Concomitant]
     Active Substance: CANNABIS SATIVA SUBSP. INDICA TOP

REACTIONS (3)
  - Musculoskeletal stiffness [None]
  - Neck pain [None]
  - Headache [None]

NARRATIVE: CASE EVENT DATE: 20210825
